FAERS Safety Report 7594374-0 (Version None)
Quarter: 2011Q3

REPORT INFORMATION
  Report Type: 
  Country: None (occurrence: None)
  Receive Date: 20110707
  Receipt Date: 20110628
  Transmission Date: 20111222
  Serious: Yes (Hospitalization)
  Sender: FDA-Public Use
  Company Number: US-BIOGENIDEC-2011BI022991

PATIENT
  Age: 18 Year
  Sex: Female

DRUGS (1)
  1. TYSABRI [Suspect]
     Indication: MULTIPLE SCLEROSIS
     Route: 042
     Dates: start: 20110321, end: 20110512

REACTIONS (5)
  - DYSKINESIA [None]
  - MUSCULAR WEAKNESS [None]
  - HEMIPLEGIA [None]
  - ABASIA [None]
  - CEREBROVASCULAR ACCIDENT [None]
